FAERS Safety Report 7513545-2 (Version None)
Quarter: 2011Q2

REPORT INFORMATION
  Report Type: 
  Country: None (occurrence: None)
  Receive Date: 20110531
  Receipt Date: 20110519
  Transmission Date: 20111010
  Serious: Yes (Death, Hospitalization)
  Sender: FDA-Public Use
  Company Number: IT-BAYER-2011-043239

PATIENT
  Age: 87 Year
  Sex: Female

DRUGS (3)
  1. LEVOFLOXACIN [Suspect]
     Indication: FEMORAL NECK FRACTURE
     Dosage: DAILY DOSE 1 DF
     Route: 042
     Dates: start: 20091230, end: 20100124
  2. CEFTAZIDIME [Suspect]
     Indication: FEMORAL NECK FRACTURE
     Dosage: DAILY DOSE 2 G
     Route: 042
     Dates: start: 20091230, end: 20100124
  3. CIPROFLAXACIN [Suspect]
     Indication: FEMORAL NECK FRACTURE
     Dosage: DAILY DOSE 500 MG
     Route: 048
     Dates: start: 20100125, end: 20100215

REACTIONS (3)
  - CLOSTRIDIUM DIFFICILE COLITIS [None]
  - ORAL CANDIDIASIS [None]
  - MYOCARDIAL ISCHAEMIA [None]
